FAERS Safety Report 22609553 (Version 1)
Quarter: 2023Q2

REPORT INFORMATION
  Report Type: Spontaneous
  Country: US (occurrence: None)
  Receive Date: 20230616
  Receipt Date: 20230616
  Transmission Date: 20230722
  Serious: Yes (Other)
  Sender: FDA-Public Use
  Company Number: US-ROCHE-3366859

PATIENT
  Sex: Female
  Weight: 128.48 kg

DRUGS (7)
  1. ACTIVASE [Suspect]
     Active Substance: ALTEPLASE
     Indication: Ischaemic stroke
     Dosage: BOLUS DOSE (ONE TIME DOSE) ;ONGOING: NO, BOLUS, 90 MG
     Route: 042
     Dates: start: 20230608, end: 20230608
  2. ACTIVASE [Suspect]
     Active Substance: ALTEPLASE
  3. ACTIVASE [Suspect]
     Active Substance: ALTEPLASE
     Dosage: GIVEN OVER 1 HOUR (ONE TIME DOSE) ;ONGOING: NO
     Route: 042
     Dates: start: 20230608, end: 20230608
  4. ACTIVASE [Suspect]
     Active Substance: ALTEPLASE
  5. SERTRALINE HYDROCHLORIDE [Concomitant]
     Active Substance: SERTRALINE HYDROCHLORIDE
     Dosage: STARTED BEFORE ACTIVASE
     Route: 048
  6. ORTHO TRI CYCLEN [Concomitant]
     Active Substance: ETHINYL ESTRADIOL\NORGESTIMATE
     Dosage: DOSE: 0.18/0.215/0.25 MG IN 35 MCG; STARTED BEFORE ACTIVASE
     Route: 048
  7. LORAZEPAM [Concomitant]
     Active Substance: LORAZEPAM
     Dosage: STARTED BEFORE ACTIVASE
     Route: 048

REACTIONS (4)
  - Inappropriate schedule of product administration [Unknown]
  - Device malfunction [Unknown]
  - Product quality issue [Unknown]
  - No adverse event [Unknown]

NARRATIVE: CASE EVENT DATE: 20230608
